FAERS Safety Report 15098990 (Version 2)
Quarter: 2018Q3

REPORT INFORMATION
  Report Type: Report from Study
  Country: FR (occurrence: FR)
  Receive Date: 20180702
  Receipt Date: 20180705
  Transmission Date: 20181010
  Serious: Yes (Hospitalization)
  Sender: FDA-Public Use
  Company Number: FR-GUERBET-FR-20180351

PATIENT
  Age: 49 Year
  Sex: Female

DRUGS (1)
  1. OPTIJECT [Suspect]
     Active Substance: IOVERSOL
     Indication: COMPUTERISED TOMOGRAM THORAX
     Route: 042
     Dates: start: 20180621, end: 20180621

REACTIONS (11)
  - Rhinorrhoea [Unknown]
  - Laryngeal discomfort [Unknown]
  - Sneezing [Unknown]
  - Cough [Unknown]
  - Vomiting [Unknown]
  - Chills [Unknown]
  - Type I hypersensitivity [Unknown]
  - Nausea [Unknown]
  - Dyspnoea [Unknown]
  - Dysphonia [Unknown]
  - Rhinitis [Unknown]

NARRATIVE: CASE EVENT DATE: 20180621
